FAERS Safety Report 16715473 (Version 2)
Quarter: 2019Q3

REPORT INFORMATION
  Report Type: Spontaneous
  Country: GB (occurrence: GB)
  Receive Date: 20190819
  Receipt Date: 20190824
  Transmission Date: 20191005
  Serious: Yes (Death, Life-Threatening, Hospitalization, Disabling, Other)
  Sender: FDA-Public Use
  Company Number: GB-009507513-1908GBR005905

PATIENT
  Age: 83 Year
  Sex: Female
  Weight: 64 kg

DRUGS (5)
  1. METFORMIN [Concomitant]
     Active Substance: METFORMIN HYDROCHLORIDE
     Dosage: UNK
  2. GLIMEPIRIDE. [Suspect]
     Active Substance: GLIMEPIRIDE
     Dosage: UNK
  3. GLUCOPHAGE [Suspect]
     Active Substance: METFORMIN HYDROCHLORIDE
     Dosage: UNK
  4. JANUVIA [Suspect]
     Active Substance: SITAGLIPTIN PHOSPHATE
     Indication: TYPE 2 DIABETES MELLITUS
     Dosage: 100 MG DAILY
     Route: 048
     Dates: end: 20190812
  5. PEPTAC (CALCIUM CARBONATE (+) SODIUM ALGINATE (+) SODIUM BICARBONATE) [Suspect]
     Active Substance: CALCIUM CARBONATE\SODIUM ALGINATE\SODIUM BICARBONATE
     Dosage: UNK

REACTIONS (15)
  - Weight decreased [Unknown]
  - Renal impairment [Unknown]
  - Nausea [Unknown]
  - Myocardial infarction [Fatal]
  - Factitious disorder [Unknown]
  - Vomiting [Unknown]
  - Blood glucose increased [Unknown]
  - Diarrhoea [Unknown]
  - Abdominal distension [Unknown]
  - Cough [Not Recovered/Not Resolved]
  - Hyporeflexia [Unknown]
  - Idiopathic pulmonary fibrosis [Not Recovered/Not Resolved]
  - Tachyarrhythmia [Unknown]
  - Gastrooesophageal reflux disease [Not Recovered/Not Resolved]
  - Acute kidney injury [Unknown]

NARRATIVE: CASE EVENT DATE: 2019
